FAERS Safety Report 25635348 (Version 1)
Quarter: 2025Q3

REPORT INFORMATION
  Report Type: Spontaneous
  Country: US (occurrence: US)
  Receive Date: 20250802
  Receipt Date: 20250802
  Transmission Date: 20251020
  Serious: No
  Sender: AUROBINDO
  Company Number: US-AUROBINDO-AUR-APL-2025-000293

PATIENT
  Age: 60 Year
  Sex: Female
  Weight: 80.739 kg

DRUGS (3)
  1. TERBINAFINE HYDROCHLORIDE [Suspect]
     Active Substance: TERBINAFINE HYDROCHLORIDE
     Indication: Onychomycosis
     Dosage: UNK, ONCE A DAY
     Route: 065
     Dates: start: 20241214, end: 20221226
  2. VITAMINS [Concomitant]
     Active Substance: VITAMINS
     Indication: Product used for unknown indication
     Route: 065
  3. XANAX [Concomitant]
     Active Substance: ALPRAZOLAM
     Indication: Anxiety
     Route: 065

REACTIONS (3)
  - Vision blurred [Unknown]
  - Back pain [Unknown]
  - Abdominal pain [Unknown]
